FAERS Safety Report 6583123-0 (Version None)
Quarter: 2010Q1

REPORT INFORMATION
  Report Type: 
  Country: None (occurrence: None)
  Receive Date: 20100216
  Receipt Date: 20100204
  Transmission Date: 20100710
  Serious: Yes (Hospitalization)
  Sender: FDA-Public Use
  Company Number: SE-ROCHE-683632

PATIENT
  Age: 61 Year
  Sex: Female

DRUGS (1)
  1. ACTEMRA [Suspect]
     Indication: RHEUMATOID ARTHRITIS
     Dosage: DRUG NAME WAS REPORTED AS ROACTEMRA 20 MG/ML.
     Route: 042
     Dates: start: 20090508, end: 20091029

REACTIONS (1)
  - ANGINA PECTORIS [None]
